FAERS Safety Report 16913221 (Version 2)
Quarter: 2020Q2

REPORT INFORMATION
  Report Type: Spontaneous
  Country: CA (occurrence: CA)
  Receive Date: 20191014
  Receipt Date: 20200608
  Transmission Date: 20200713
  Serious: Yes (Other)
  Sender: FDA-Public Use
  Company Number: CA-TEVA-2019-CA-1119736

PATIENT
  Age: 36 Year
  Sex: Male

DRUGS (4)
  1. CLONAZEPAM. [Suspect]
     Active Substance: CLONAZEPAM
     Indication: PRODUCT USED FOR UNKNOWN INDICATION
     Route: 065
  2. CYMBALTA [Suspect]
     Active Substance: DULOXETINE HYDROCHLORIDE
     Indication: DEPRESSION
     Route: 065
  3. COCAINE [Suspect]
     Active Substance: COCAINE
     Indication: PRODUCT USED FOR UNKNOWN INDICATION
     Route: 065
  4. LORAZEPAM. [Suspect]
     Active Substance: LORAZEPAM
     Indication: ANXIETY
     Route: 065

REACTIONS (11)
  - Anxiety [Unknown]
  - Substance-induced psychotic disorder [Unknown]
  - Loss of consciousness [Unknown]
  - Suicide attempt [Unknown]
  - Paranoia [Unknown]
  - Aggression [Unknown]
  - Hallucination, auditory [Unknown]
  - Drug abuse [Unknown]
  - Hallucination, visual [Unknown]
  - Physical assault [Unknown]
  - Sleep deficit [Unknown]
